FAERS Safety Report 13654259 (Version 1)
Quarter: 2017Q2

REPORT INFORMATION
  Report Type: Spontaneous
  Country: DE (occurrence: DE)
  Receive Date: 20170614
  Receipt Date: 20170614
  Transmission Date: 20170830
  Serious: Yes (Hospitalization)
  Sender: FDA-Public Use
  Company Number: DE-AMGEN-DEUSP2017090085

PATIENT
  Age: 85 Year
  Sex: Female

DRUGS (7)
  1. ENBREL [Suspect]
     Active Substance: ETANERCEPT
     Indication: RHEUMATOID ARTHRITIS
     Dosage: 50 MG, WEEKLY
     Route: 065
     Dates: start: 20150310
  2. METOHEXAL SUCC [Concomitant]
     Active Substance: METOPROLOL SUCCINATE
     Dosage: 47.5 MG, (1 X 0.5)
  3. TORASEMID [Concomitant]
     Active Substance: TORSEMIDE
     Dosage: 10 UNK, UNK
  4. SIMVASTATIN. [Concomitant]
     Active Substance: SIMVASTATIN
     Dosage: 60 MG, UNK
  5. ASS PROTECTID [Concomitant]
     Dosage: 100 MG, DAILY
  6. PREDNISOLONE. [Concomitant]
     Active Substance: PREDNISOLONE
     Dosage: 20 MG, UNK
  7. NOVAMINSULFON [Concomitant]
     Active Substance: METAMIZOLE
     Dosage: 4 X 20 GTT, AS NEEDED

REACTIONS (1)
  - Pneumonitis [Unknown]

NARRATIVE: CASE EVENT DATE: 20170512
